FAERS Safety Report 18854302 (Version 1)
Quarter: 2021Q1

REPORT INFORMATION
  Report Type: Spontaneous
  Country: GB (occurrence: GB)
  Receive Date: 20210205
  Receipt Date: 20210205
  Transmission Date: 20210420
  Serious: Yes (Death, Other)
  Sender: FDA-Public Use
  Company Number: GB-PFIZER INC-2021088526

PATIENT
  Sex: Male

DRUGS (2)
  1. CEFTOBIPROLE [Suspect]
     Active Substance: CEFTOBIPROLE
     Indication: PNEUMONIA
     Dosage: UNK
  2. MEROPENEM. [Suspect]
     Active Substance: MEROPENEM
     Indication: PNEUMONIA
     Dosage: UNK

REACTIONS (2)
  - Death [Fatal]
  - Drug ineffective [Unknown]
